FAERS Safety Report 24808551 (Version 1)
Quarter: 2025Q1

REPORT INFORMATION
  Report Type: Report from Study
  Country: US (occurrence: US)
  Receive Date: 20250106
  Receipt Date: 20250106
  Transmission Date: 20250409
  Serious: Yes (Other)
  Sender: RECORDATI
  Company Number: US-RECORDATI-2023002913

PATIENT

DRUGS (11)
  1. ISTURISA [Suspect]
     Active Substance: OSILODROSTAT PHOSPHATE
     Indication: Pituitary-dependent Cushing^s syndrome
     Route: 048
     Dates: start: 20200615, end: 2023
  2. ISTURISA [Suspect]
     Active Substance: OSILODROSTAT PHOSPHATE
     Dosage: (5MG QAM AND 3MG QAFTERNOON),8 MG DAILY (BID) FOR 1 MG STRENGTH
     Route: 048
     Dates: end: 202412
  3. ISTURISA [Suspect]
     Active Substance: OSILODROSTAT PHOSPHATE
     Dosage: (5MG QAM AND 3MG QAFTERNOON), BID, FOR 5MG STRENGTH
     Route: 048
     Dates: end: 202412
  4. ISTURISA [Suspect]
     Active Substance: OSILODROSTAT PHOSPHATE
     Dosage: (5MG QAM AND 3MG QAFTERNOON),8 MG DAILY (BID) FOR 1 MG STRENGTH
     Route: 048
     Dates: start: 202412
  5. ISTURISA [Suspect]
     Active Substance: OSILODROSTAT PHOSPHATE
     Dosage: (5MG QAM AND 3MG QAFTERNOON), BID, FOR 5MG STRENGTH
     Route: 048
     Dates: start: 202412
  6. FAMOTIDINE [Concomitant]
     Active Substance: FAMOTIDINE
     Indication: Product used for unknown indication
     Route: 048
     Dates: start: 20190101
  7. KETOROLAC TROMETHAMINE [Concomitant]
     Active Substance: KETOROLAC TROMETHAMINE
     Indication: Product used for unknown indication
     Route: 048
     Dates: start: 20190101
  8. LEVOTHYROXINE SODIUM [Concomitant]
     Active Substance: LEVOTHYROXINE SODIUM
     Indication: Product used for unknown indication
     Dosage: 50 MICROGRAM, QD, TABLET
     Route: 048
     Dates: start: 20230123
  9. RESTASIS [Concomitant]
     Active Substance: CYCLOSPORINE
     Indication: Product used for unknown indication
     Dosage: 0.05 PERCENT, BID, EMULSION
     Route: 047
     Dates: start: 20220603
  10. TRAMADOL HCL [Concomitant]
     Active Substance: TRAMADOL HYDROCHLORIDE
     Indication: Product used for unknown indication
     Route: 048
     Dates: start: 20190101
  11. XYZAL ALLERGY 24HR [Concomitant]
     Active Substance: LEVOCETIRIZINE DIHYDROCHLORIDE
     Indication: Product used for unknown indication
     Dosage: 5 MG, QD AT MORNING
     Route: 048
     Dates: start: 20190101

REACTIONS (2)
  - Nephrolithiasis [Not Recovered/Not Resolved]
  - Cortisol decreased [Recovering/Resolving]

NARRATIVE: CASE EVENT DATE: 20230502
